FAERS Safety Report 6430394-7 (Version None)
Quarter: 2009Q4

REPORT INFORMATION
  Report Type: 
  Country: None (occurrence: None)
  Receive Date: 20091106
  Receipt Date: 20091027
  Transmission Date: 20100525
  Serious: Yes (Death, Other)
  Sender: FDA-Public Use
  Company Number: US-PFIZER INC-2009254457

PATIENT
  Sex: Male

DRUGS (2)
  1. EMCYT [Suspect]
     Indication: PROSTATE CANCER METASTATIC
     Dosage: 420 MG, 3X/DAY
     Route: 048
     Dates: start: 20090501, end: 20090701
  2. VINBLASTINE [Concomitant]
     Dosage: UNK

REACTIONS (2)
  - DEATH [None]
  - PERFORMANCE STATUS DECREASED [None]
